FAERS Safety Report 15164370 (Version 1)
Quarter: 2018Q3

REPORT INFORMATION
  Report Type: Spontaneous
  Country: ES (occurrence: ES)
  Receive Date: 20180719
  Receipt Date: 20180719
  Transmission Date: 20181010
  Serious: Yes (Other)
  Sender: FDA-Public Use
  Company Number: ES-TEVA-2018-ES-928621

PATIENT
  Age: 73 Year
  Sex: Male
  Weight: 79.9 kg

DRUGS (8)
  1. GEMCITABINA (7314A) [Suspect]
     Active Substance: GEMCITABINE HYDROCHLORIDE
     Indication: SQUAMOUS CELL CARCINOMA OF LUNG
     Route: 042
     Dates: start: 20180507
  2. CISPLATINO PHARMACIA 1 MG/ML CONCENTRADO PARA SOLUCION PARA PERFUSION [Suspect]
     Active Substance: CISPLATIN
     Indication: SQUAMOUS CELL CARCINOMA OF LUNG
     Route: 042
     Dates: start: 20180507
  3. CETIRIZINA (2364A) [Concomitant]
     Active Substance: CETIRIZINE HYDROCHLORIDE
     Dosage: 10 MILLIGRAM DAILY;
     Route: 048
  4. ELOCOM 1 MG/G POMADA, 1 TUBO DE 30 G [Concomitant]
     Route: 061
  5. CODEINA (162A) [Concomitant]
     Active Substance: CODEINE PHOSPHATE
     Route: 048
  6. OMEPRAZOL (2141A) [Concomitant]
     Active Substance: OMEPRAZOLE
     Dosage: 20 MILLIGRAM DAILY;
     Route: 048
  7. NISTATINA (2027A) [Concomitant]
     Route: 048
  8. EUTIROX 150 MICROGRAMOS COMPRIMIDOS , 100 COMPRIMIDOS [Concomitant]
     Dosage: 150 MILLIGRAM DAILY;
     Route: 048

REACTIONS (1)
  - Cellulitis [Recovered/Resolved]

NARRATIVE: CASE EVENT DATE: 20180518
